FAERS Safety Report 5526032-8 (Version None)
Quarter: 2007Q4

REPORT INFORMATION
  Report Type: 
  Country: None (occurrence: None)
  Receive Date: 20071126
  Receipt Date: 20071119
  Transmission Date: 20080405
  Serious: Yes (Hospitalization)
  Sender: FDA-Public Use
  Company Number: US-GENENTECH-251608

PATIENT
  Age: 55 Year
  Sex: Female
  Weight: 82.2 kg

DRUGS (4)
  1. BEVACIZUMAB [Suspect]
     Indication: BREAST CANCER
     Dosage: 15 MG/KG, UNK
     Route: 042
     Dates: start: 20070803
  2. DOCETAXEL [Suspect]
     Indication: BREAST CANCER
     Dosage: 60 MG/M2, UNK
     Route: 042
     Dates: start: 20070803
  3. CYCLOPHOSPHAMIDE [Suspect]
     Indication: BREAST CANCER
     Dosage: 500 MG/M2, UNK
     Route: 042
     Dates: start: 20070803
  4. DOXORUBICIN HCL [Suspect]
     Indication: BREAST CANCER
     Dosage: 45 MG/M2, UNK
     Route: 042
     Dates: start: 20070803

REACTIONS (1)
  - LARGE INTESTINAL ULCER [None]
